FAERS Safety Report 9837561 (Version 4)
Quarter: 2014Q2

REPORT INFORMATION
  Report Type: Report from Study
  Country: DE (occurrence: DE)
  Receive Date: 20140123
  Receipt Date: 20140516
  Transmission Date: 20141212
  Serious: Yes (Disabling)
  Sender: FDA-Public Use
  Company Number: DE-BAYER-2014-006994

PATIENT
  Age: 72 Year
  Sex: Male
  Weight: 72 kg

DRUGS (5)
  1. REGORAFENIB [Suspect]
     Indication: HEPATOCELLULAR CARCINOMA
     Dosage: 160 MG, QD
     Route: 048
     Dates: start: 20131213, end: 20140102
  2. REGORAFENIB [Suspect]
     Indication: HEPATOCELLULAR CARCINOMA
     Dosage: 160 MG, QD
     Route: 048
     Dates: start: 20131213, end: 20140102
  3. REGORAFENIB [Suspect]
     Indication: HEPATOCELLULAR CARCINOMA
     Dosage: 160 MG, QD
     Route: 048
     Dates: start: 20131213, end: 20140102
  4. DOCITON [Concomitant]
     Indication: HYPERTENSION
     Dosage: 40 DAILY
     Route: 048
     Dates: start: 2009
  5. CODIOVAN [Concomitant]
     Indication: HYPERTENSION
     Dosage: 80/12.5 DAILY
     Route: 048
     Dates: start: 1998

REACTIONS (1)
  - Retinal artery occlusion [Not Recovered/Not Resolved]
